FAERS Safety Report 18007985 (Version 1)
Quarter: 2020Q3

REPORT INFORMATION
  Report Type: Spontaneous
  Country: US (occurrence: US)
  Receive Date: 20200710
  Receipt Date: 20200710
  Transmission Date: 20201103
  Serious: Yes (Hospitalization)
  Sender: FDA-Public Use
  Company Number: US-AKRON, INC.-2087227

PATIENT
  Sex: Male

DRUGS (1)
  1. ZOSTRIX HP [Suspect]
     Active Substance: CAPSAICIN
     Indication: ARTHRALGIA
     Route: 061

REACTIONS (3)
  - Knee arthroplasty [Unknown]
  - Insomnia [Unknown]
  - Burning sensation [Unknown]
